FAERS Safety Report 26020937 (Version 1)
Quarter: 2025Q4

REPORT INFORMATION
  Report Type: Report from Study
  Country: CL (occurrence: CL)
  Receive Date: 20251110
  Receipt Date: 20251110
  Transmission Date: 20260118
  Serious: Yes (Life-Threatening, Other)
  Sender: NOVARTIS
  Company Number: CL-002147023-NVSC2024CL061027

PATIENT
  Age: 62 Year
  Sex: Female

DRUGS (8)
  1. KESIMPTA [Suspect]
     Active Substance: OFATUMUMAB
     Indication: Relapsing-remitting multiple sclerosis
     Dosage: 20 MG, QW
     Route: 058
     Dates: start: 20240313
  2. KESIMPTA [Suspect]
     Active Substance: OFATUMUMAB
     Dosage: 20 MG, QMO
     Route: 058
  3. KESIMPTA [Suspect]
     Active Substance: OFATUMUMAB
     Dosage: 20 MG, QMO
     Route: 058
  4. KESIMPTA [Suspect]
     Active Substance: OFATUMUMAB
     Dosage: UNK
     Route: 065
     Dates: start: 20240917
  5. KESIMPTA [Suspect]
     Active Substance: OFATUMUMAB
     Dosage: 20 MG, QMO
     Route: 058
  6. AZITHROMYCIN DIHYDRATE [Concomitant]
     Active Substance: AZITHROMYCIN DIHYDRATE
     Indication: Product used for unknown indication
     Dosage: UNK
     Route: 065
  7. ALBUTEROL [Concomitant]
     Active Substance: ALBUTEROL
     Indication: Product used for unknown indication
     Dosage: UNK
     Route: 065
  8. Nastizol [Concomitant]
     Indication: Product used for unknown indication
     Dosage: UNK (HALF TABLET)
     Route: 065

REACTIONS (22)
  - White blood cell count decreased [Unknown]
  - Illness [Unknown]
  - Bronchitis [Unknown]
  - Nasopharyngitis [Unknown]
  - Bronchial obstruction [Unknown]
  - Myalgia [Not Recovered/Not Resolved]
  - Pyrexia [Recovering/Resolving]
  - Malaise [Not Recovered/Not Resolved]
  - Chills [Recovering/Resolving]
  - Feeling abnormal [Recovering/Resolving]
  - Chest discomfort [Unknown]
  - Headache [Unknown]
  - Fear [Unknown]
  - Gastrointestinal viral infection [Unknown]
  - Pain [Unknown]
  - Musculoskeletal pain [Unknown]
  - Gastrointestinal disorder [Unknown]
  - Vomiting [Unknown]
  - Fatigue [Unknown]
  - Pain in extremity [Unknown]
  - Memory impairment [Unknown]
  - Product supply issue [Unknown]

NARRATIVE: CASE EVENT DATE: 20240313
